FAERS Safety Report 7852098-6 (Version None)
Quarter: 2011Q4

REPORT INFORMATION
  Report Type: 
  Country: None (occurrence: None)
  Receive Date: 20111026
  Receipt Date: 20111012
  Transmission Date: 20120403
  Serious: Yes (Hospitalization)
  Sender: FDA-Public Use
  Company Number: CH-PFIZER INC-2011256450

PATIENT
  Age: 43 Year
  Sex: Male

DRUGS (9)
  1. INDERAL LA [Suspect]
     Dosage: 80 MG, 1X/DAY
     Route: 048
     Dates: start: 20110902, end: 20110905
  2. INDERAL LA [Suspect]
     Dosage: MORE THAN 80 MG
     Route: 048
     Dates: start: 20110905, end: 20110905
  3. ENTUMIN [Suspect]
     Dosage: UNK
  4. CLONAZEPAM [Concomitant]
     Dosage: UNK
  5. KETALGIN [Concomitant]
     Dosage: UNK
  6. RISPERDAL [Concomitant]
     Dosage: UNK
  7. INDERAL LA [Suspect]
     Dosage: GRADUALLY INCREASED TO 80 MG DAILY
     Route: 048
     Dates: start: 20110829, end: 20110902
  8. INDERAL LA [Suspect]
     Indication: HEPATITIS
     Dosage: 5 MG, 3X/DAY
     Route: 048
     Dates: start: 20110820, end: 20110829
  9. TAZOBAC [Concomitant]
     Indication: ERYSIPELAS
     Dosage: UNK
     Dates: start: 20110801, end: 20110823

REACTIONS (3)
  - HALLUCINATION, VISUAL [None]
  - CONFUSIONAL STATE [None]
  - DRUG PRESCRIBING ERROR [None]
